FAERS Safety Report 9654529 (Version 1)
Quarter: 2013Q4

REPORT INFORMATION
  Report Type: Spontaneous
  Country: US (occurrence: US)
  Receive Date: 20131029
  Receipt Date: 20131029
  Transmission Date: 20140711
  Serious: No
  Sender: FDA-Public Use
  Company Number: US-BIOGENIDEC-2013BI084962

PATIENT
  Age: 50 Year
  Sex: Female

DRUGS (3)
  1. TECFIDERA [Suspect]
     Indication: MULTIPLE SCLEROSIS
     Dates: start: 20130415
  2. WELLBUTRIN [Concomitant]
  3. TOVIAZ [Concomitant]
     Indication: URINARY TRACT DISORDER

REACTIONS (1)
  - Swelling face [Recovered/Resolved]
